FAERS Safety Report 4341824-9 (Version None)
Quarter: 2004Q2

REPORT INFORMATION
  Report Type: 
  Country: None (occurrence: None)
  Receive Date: 20040416
  Receipt Date: 20040331
  Transmission Date: 20050107
  Serious: Yes (Other)
  Sender: FDA-Public Use
  Company Number: 205603

PATIENT
  Age: 47 Year
  Sex: Female
  Weight: 77 kg

DRUGS (7)
  1. XOLAIR [Suspect]
     Indication: ASTHMA
     Dosage: 150 MG, Q4W, SUBCUTANEOUS
     Route: 058
     Dates: start: 20040127, end: 20040223
  2. MEDROL [Concomitant]
  3. FLONASE [Concomitant]
  4. UNIPHYL [Concomitant]
  5. SEREVENT DISKUS (SALMETEROL XINAFOATE) [Concomitant]
  6. FLOVENT [Concomitant]
  7. ATROVENT [Concomitant]

REACTIONS (1)
  - DYSPNOEA [None]
